FAERS Safety Report 24641450 (Version 1)
Quarter: 2024Q4

REPORT INFORMATION
  Report Type: Spontaneous
  Country: GB (occurrence: GB)
  Receive Date: 20241120
  Receipt Date: 20241120
  Transmission Date: 20250115
  Serious: Yes (Other)
  Sender: TEVA
  Company Number: GB-MHRA-TPP2299866C21327236YC1731068660805

PATIENT
  Age: 56 Year
  Sex: Male
  Weight: 100 kg

DRUGS (9)
  1. DOXYCYCLINE [Suspect]
     Active Substance: DOXYCYCLINE
     Dosage: TAKE TWO CAPSULES NOW ON DAY 1 THEN TAKE ONE CA
     Route: 065
     Dates: start: 20241107
  2. BISOPROLOL [Concomitant]
     Active Substance: BISOPROLOL
     Dates: start: 20240305
  3. AMOXICILLIN [Concomitant]
     Active Substance: AMOXICILLIN
     Route: 065
  4. ASPIRIN [Concomitant]
     Active Substance: ASPIRIN
     Dates: start: 20240305
  5. SOLIFENACIN [Concomitant]
     Active Substance: SOLIFENACIN
     Route: 065
     Dates: start: 20240305
  6. NOVORAPID [Concomitant]
     Active Substance: INSULIN ASPART
     Dosage: 4-5 UNITS WITH BREAKFAST, LUNCH AND EVENING MEAL.
     Route: 065
     Dates: start: 20240305
  7. LEVEMIR [Concomitant]
     Active Substance: INSULIN DETEMIR
     Dosage: 10 UNITS AT BEDTIME
     Route: 065
     Dates: start: 20240305
  8. OMEPRAZOLE [Concomitant]
     Active Substance: OMEPRAZOLE
     Dates: start: 20240305
  9. RAMIPRIL [Concomitant]
     Active Substance: RAMIPRIL
     Dates: start: 20240305

REACTIONS (1)
  - Lip swelling [Recovering/Resolving]
